FAERS Safety Report 4345362-9 (Version None)
Quarter: 2004Q2

REPORT INFORMATION
  Report Type: 
  Country: None (occurrence: None)
  Receive Date: 20040422
  Receipt Date: 20040422
  Transmission Date: 20050107
  Serious: Yes (Other)
  Sender: FDA-Public Use
  Company Number: None

PATIENT
  Age: 50 Year
  Sex: Male
  Weight: 95.2554 kg

DRUGS (1)
  1. ADVAIR DISKUS 250/50 [Suspect]
     Indication: LABYRINTHITIS
     Dosage: 1 INHALATION ONCE PER D RESPIRATORY
     Route: 055
     Dates: start: 20040101, end: 20040424

REACTIONS (4)
  - DIZZINESS [None]
  - LABYRINTHITIS [None]
  - NAUSEA [None]
  - VERTIGO [None]
